FAERS Safety Report 9921176 (Version 2)
Quarter: 2015Q4

REPORT INFORMATION
  Report Type: Report from Study
  Country: US (occurrence: US)
  Receive Date: 20140225
  Receipt Date: 20151119
  Transmission Date: 20160305
  Serious: Yes (Hospitalization, Other)
  Sender: FDA-Public Use
  Company Number: US-ROCHE-1346676

PATIENT
  Age: 64 Year
  Sex: Female

DRUGS (23)
  1. SYSTANE (HYPROMELLOSE 2910 (4000 MPA.S)) [Concomitant]
     Active Substance: HYPROMELLOSE 2910 (4000 MPA.S)
     Dosage: OU QPM
     Route: 065
  2. DIOVAN [Concomitant]
     Active Substance: VALSARTAN
  3. ASPIRIN. [Concomitant]
     Active Substance: ASPIRIN
     Route: 065
  4. FUROSEMIDE. [Concomitant]
     Active Substance: FUROSEMIDE
     Route: 065
  5. LIDOCAINE HYDROCHLORIDE. [Concomitant]
     Active Substance: LIDOCAINE HYDROCHLORIDE
     Route: 065
  6. FOLIC ACID. [Concomitant]
     Active Substance: FOLIC ACID
  7. PROPARACAINE [Concomitant]
     Active Substance: PROPARACAINE
     Route: 065
  8. AMOXICILLIN. [Concomitant]
     Active Substance: AMOXICILLIN
  9. HYDROXYZINE HCL [Concomitant]
     Active Substance: HYDROXYZINE HYDROCHLORIDE
  10. ZEMPLAR [Concomitant]
     Active Substance: PARICALCITOL
  11. METANX [Concomitant]
     Active Substance: LEVOMEFOLATE CALCIUM\METHYLCOBALAMIN\PYRIDOXAL PHOSPHATE ANHYDROUS
  12. PROCRIT [Concomitant]
     Active Substance: ERYTHROPOIETIN
  13. LUCENTIS [Suspect]
     Active Substance: RANIBIZUMAB
     Indication: DIABETIC RETINAL OEDEMA
     Dosage: OU
     Route: 050
     Dates: start: 20110902
  14. AVASTIN [Suspect]
     Active Substance: BEVACIZUMAB
     Indication: PRODUCT USED FOR UNKNOWN INDICATION
     Route: 065
     Dates: start: 20110922
  15. PROTONIX (UNITED STATES) [Concomitant]
  16. LANTUS [Concomitant]
     Active Substance: INSULIN GLARGINE
  17. HUMALOG [Concomitant]
     Active Substance: INSULIN LISPRO
  18. LUCENTIS [Suspect]
     Active Substance: RANIBIZUMAB
     Indication: DIABETIC RETINOPATHY
  19. DECADRON [Concomitant]
     Active Substance: DEXAMETHASONE
     Indication: DIABETIC RETINAL OEDEMA
     Dosage: OU
     Route: 065
  20. LIVALO [Concomitant]
     Active Substance: PITAVASTATIN CALCIUM
  21. METOPROLOL TARTRATE. [Concomitant]
     Active Substance: METOPROLOL TARTRATE
  22. SPIRONOLACTONE. [Concomitant]
     Active Substance: SPIRONOLACTONE
  23. SSD CREAM [Concomitant]
     Active Substance: SILVER SULFADIAZINE

REACTIONS (14)
  - Herpes zoster [Unknown]
  - Fatigue [Unknown]
  - Off label use [Unknown]
  - Vitreous detachment [Unknown]
  - Macular hole [Unknown]
  - Cystitis [Unknown]
  - Deafness [Unknown]
  - Vision blurred [Unknown]
  - Photopsia [Unknown]
  - Anaemia [Unknown]
  - Visual impairment [Unknown]
  - Epistaxis [Unknown]
  - Tenderness [Unknown]
  - Intraocular lens implant [Unknown]

NARRATIVE: CASE EVENT DATE: 20110902
